FAERS Safety Report 6788947-2 (Version None)
Quarter: 2010Q2

REPORT INFORMATION
  Report Type: 
  Country: None (occurrence: None)
  Receive Date: 20100623
  Receipt Date: 20080605
  Transmission Date: 20101027
  Serious: Yes (Other)
  Sender: FDA-Public Use
  Company Number: US-PFIZER INC-2008047976

PATIENT
  Sex: Male
  Weight: 129 kg

DRUGS (3)
  1. HALCION [Suspect]
     Indication: SLEEP DISORDER
     Dates: start: 20080603, end: 20080603
  2. VICODIN [Concomitant]
  3. PRILOSEC [Concomitant]
     Indication: GASTROOESOPHAGEAL REFLUX DISEASE

REACTIONS (2)
  - AGGRESSION [None]
  - SOMNAMBULISM [None]
